FAERS Safety Report 24263531 (Version 1)
Quarter: 2024Q3

REPORT INFORMATION
  Report Type: Spontaneous
  Country: US (occurrence: US)
  Receive Date: 20240829
  Receipt Date: 20240829
  Transmission Date: 20241017
  Serious: No
  Sender: BIOCON
  Company Number: US-BIOCON BIOLOGICS LIMITED-BBL2024001144

PATIENT

DRUGS (1)
  1. ADALIMUMAB [Suspect]
     Active Substance: ADALIMUMAB
     Indication: Arthritis reactive
     Dosage: 40 MILLIGRAM
     Route: 065
     Dates: start: 20240215

REACTIONS (3)
  - Endodontic procedure [Unknown]
  - Fatigue [Unknown]
  - Product use in unapproved indication [Unknown]
